FAERS Safety Report 16736102 (Version 1)
Quarter: 2019Q3

REPORT INFORMATION
  Report Type: Spontaneous
  Country: US (occurrence: US)
  Receive Date: 20190708
  Receipt Date: 20190708
  Transmission Date: 20191005
  Serious: No
  Sender: FDA-Public Use
  Company Number: None

PATIENT
  Age: 56 Year
  Sex: Male
  Weight: 240 kg

DRUGS (2)
  1. FLECAINIDE 100MG. TAB ROXA GENERIC FOR FLECAINIDE ACETATE [Concomitant]
     Active Substance: FLECAINIDE
  2. MELOXICAM FOR MOBIC [Suspect]
     Active Substance: MELOXICAM
     Indication: PAIN IN EXTREMITY
     Dosage: ?          QUANTITY:15 MG MILLIGRAM(S);?
     Route: 048
     Dates: start: 20190626, end: 20190628

REACTIONS (5)
  - Haemorrhage [None]
  - Wound secretion [None]
  - Penile blister [None]
  - Skin discolouration [None]
  - Skin exfoliation [None]

NARRATIVE: CASE EVENT DATE: 20190627
